FAERS Safety Report 18376532 (Version 1)
Quarter: 2020Q4

REPORT INFORMATION
  Report Type: Spontaneous
  Country: US (occurrence: US)
  Receive Date: 20201013
  Receipt Date: 20201013
  Transmission Date: 20210114
  Serious: No
  Sender: FDA-Public Use
  Company Number: US-TRIS PHARMA, INC.-20US009103

PATIENT

DRUGS (1)
  1. QUILLIVANT XR [Suspect]
     Active Substance: METHYLPHENIDATE HYDROCHLORIDE
     Indication: ATTENTION DEFICIT HYPERACTIVITY DISORDER
     Dosage: 4 MILLILITER, QD
     Route: 048
     Dates: start: 202007

REACTIONS (3)
  - Abdominal discomfort [Recovered/Resolved]
  - Product taste abnormal [Unknown]
  - Product preparation error [Unknown]

NARRATIVE: CASE EVENT DATE: 202007
